FAERS Safety Report 25475589 (Version 1)
Quarter: 2025Q2

REPORT INFORMATION
  Report Type: Spontaneous
  Country: CA (occurrence: CA)
  Receive Date: 20250624
  Receipt Date: 20250624
  Transmission Date: 20250717
  Serious: Yes (Life-Threatening, Hospitalization, Other)
  Sender: HLS THERAPEUTICS
  Company Number: CA-HLS-202501507

PATIENT
  Age: 67 Year
  Sex: Male
  Weight: 105 kg

DRUGS (7)
  1. ABILIFY MAINTENA [Concomitant]
     Active Substance: ARIPIPRAZOLE
     Route: 065
  2. CLOZARIL [Suspect]
     Active Substance: CLOZAPINE
     Indication: Schizophrenia
     Route: 048
  3. FUROSEMIDE [Concomitant]
     Active Substance: FUROSEMIDE
     Route: 065
  4. GABAPENTIN [Concomitant]
     Active Substance: GABAPENTIN
     Route: 065
  5. HYDROMORPHONE [Concomitant]
     Active Substance: HYDROMORPHONE
     Route: 065
  6. QUETIAPINE [Concomitant]
     Active Substance: QUETIAPINE
     Route: 065
  7. TRIHEXYPHENIDYL [Concomitant]
     Active Substance: TRIHEXYPHENIDYL
     Route: 065

REACTIONS (5)
  - Abdominal distension [Recovering/Resolving]
  - Faecaloma [Recovering/Resolving]
  - Intestinal dilatation [Recovering/Resolving]
  - Intestinal obstruction [Recovering/Resolving]
  - Intestinal pseudo-obstruction [Recovering/Resolving]
